FAERS Safety Report 12755156 (Version 3)
Quarter: 2016Q4

REPORT INFORMATION
  Report Type: Spontaneous
  Country: US (occurrence: US)
  Receive Date: 20160916
  Receipt Date: 20161014
  Transmission Date: 20170207
  Serious: Yes (Hospitalization, Disabling, Other)
  Sender: FDA-Public Use
  Company Number: US-009507513-1609USA004919

PATIENT
  Age: 43 Year
  Sex: Female
  Weight: 43.99 kg

DRUGS (5)
  1. STROMECTOL [Suspect]
     Active Substance: IVERMECTIN
     Dosage: 9 MG, QD
     Route: 048
     Dates: start: 201605, end: 201608
  2. ANTIMICROBIAL (UNSPECIFIED) [Concomitant]
     Active Substance: UNSPECIFIED INGREDIENT
  3. STROMECTOL [Suspect]
     Active Substance: IVERMECTIN
     Indication: INFECTION PARASITIC
     Dosage: 9 MG DAILY
     Route: 048
     Dates: start: 201112, end: 2013
  4. STROMECTOL [Suspect]
     Active Substance: IVERMECTIN
     Dosage: 3 MG, QD
     Route: 048
     Dates: start: 201608
  5. STROMECTOL [Suspect]
     Active Substance: IVERMECTIN
     Dosage: 3 MG, BID
     Route: 048
     Dates: start: 201608

REACTIONS (9)
  - Muscle spasticity [Unknown]
  - Weight decreased [Unknown]
  - Cardiac failure [Unknown]
  - Adverse event [Unknown]
  - Blindness [Unknown]
  - Central venous catheterisation [Unknown]
  - Infection [Unknown]
  - Speech disorder [Unknown]
  - Expired product administered [Unknown]

NARRATIVE: CASE EVENT DATE: 2016
